FAERS Safety Report 25041314 (Version 1)
Quarter: 2025Q1

REPORT INFORMATION
  Report Type: Report from Study
  Country: US (occurrence: US)
  Receive Date: 20250305
  Receipt Date: 20250305
  Transmission Date: 20250408
  Serious: Yes (Hospitalization, Other)
  Sender: pharmaAND
  Company Number: US-Pharmaand-2025000177

PATIENT
  Sex: Female

DRUGS (1)
  1. RUBRACA [Suspect]
     Active Substance: RUCAPARIB CAMSYLATE
     Indication: Ovarian cancer
     Dosage: 200 MG TWICE DAILY
     Route: 048

REACTIONS (4)
  - Ovarian cancer recurrent [Unknown]
  - Device related infection [Unknown]
  - Fatigue [Unknown]
  - Off label use [Recovered/Resolved]
